FAERS Safety Report 10418975 (Version 1)
Quarter: 2014Q2

REPORT INFORMATION
  Report Type: Spontaneous
  Country: US (occurrence: None)
  Receive Date: 20140617
  Receipt Date: 20140617
  Transmission Date: 20141212
  Serious: Yes (Other)
  Sender: FDA-Public Use
  Company Number: USW201306-000067

PATIENT
  Age: 83 Year
  Sex: Male
  Weight: 74.84 kg

DRUGS (2)
  1. APOKYN [Suspect]
     Indication: PARKINSON^S DISEASE
     Dosage: 0.2 ML, AS NEEDED UPTO 4 TIMES DAILY
     Dates: start: 20130510, end: 20130531
  2. SINEMET [Concomitant]

REACTIONS (2)
  - Somnolence [None]
  - Hypotension [None]
